FAERS Safety Report 9457701 (Version 1)
Quarter: 2013Q3

REPORT INFORMATION
  Report Type: Spontaneous
  Country: JP (occurrence: JP)
  Receive Date: 20130814
  Receipt Date: 20130814
  Transmission Date: 20140515
  Serious: Yes (Death)
  Sender: FDA-Public Use
  Company Number: JP-COVIDIEN/TYCO HEALTHCARE/MALLINCKRODT-T201304105

PATIENT
  Age: 65 Year
  Sex: Male
  Weight: 47.1 kg

DRUGS (5)
  1. METHADONE [Suspect]
     Indication: CANCER PAIN
     Dosage: 15 MG, QD
     Route: 048
     Dates: start: 20130726, end: 20130802
  2. METHADONE [Suspect]
     Dosage: 5 MG, SINGLE
     Route: 048
     Dates: start: 20130726, end: 20130802
  3. FENTOS [Concomitant]
     Dosage: 8 MG, UNK
     Route: 062
     Dates: start: 20130710, end: 20130725
  4. FENTOS [Concomitant]
     Dosage: 4 MG, UNK
     Route: 062
     Dates: start: 20130726, end: 20130805
  5. OXINORM                            /00045603/ [Concomitant]
     Dosage: 15 MG, PRN
     Route: 048
     Dates: start: 20130725, end: 20130730

REACTIONS (1)
  - Bladder cancer [Fatal]
